FAERS Safety Report 4732010-9 (Version None)
Quarter: 2005Q3

REPORT INFORMATION
  Report Type: 
  Country: None (occurrence: None)
  Receive Date: 20050722
  Receipt Date: 20041207
  Transmission Date: 20060218
  Serious: Yes (Other)
  Sender: FDA-Public Use
  Company Number: 04-000878

PATIENT
  Age: 44 Year
  Sex: Female

DRUGS (1)
  1. FEMHRT [Suspect]
     Indication: MENOPAUSAL SYMPTOMS
     Dosage: 5/1000 MCG, ORAL
     Route: 048
     Dates: start: 20010901, end: 20031101

REACTIONS (1)
  - BREAST CANCER [None]
